FAERS Safety Report 5630653-1 (Version None)
Quarter: 2008Q1

REPORT INFORMATION
  Report Type: 
  Country: None (occurrence: None)
  Receive Date: 20080213
  Receipt Date: 20080115
  Transmission Date: 20080703
  Serious: No
  Sender: FDA-Public Use
  Company Number: PIR# 0801032B

PATIENT
  Age: 30 Year
  Sex: Female

DRUGS (1)
  1. BALANCED SALT [Suspect]
     Indication: EYE LASER SURGERY

REACTIONS (4)
  - EYE INFLAMMATION [None]
  - MEDICAL DEVICE COMPLICATION [None]
  - PHARMACEUTICAL PRODUCT COMPLAINT [None]
  - POST PROCEDURAL COMPLICATION [None]
